FAERS Safety Report 6267260-6 (Version None)
Quarter: 2009Q3

REPORT INFORMATION
  Report Type: 
  Country: None (occurrence: None)
  Receive Date: 20090714
  Receipt Date: 20090702
  Transmission Date: 20100115
  Serious: Yes (Death, Other)
  Sender: FDA-Public Use
  Company Number: SE-PFIZER INC-2009235118

PATIENT
  Age: 54 Year

DRUGS (1)
  1. SOMATROPIN [Suspect]
     Indication: CRANIOPHARYNGIOMA
     Dosage: 0.5 MG, 1X/DAY
     Route: 058
     Dates: start: 19920812

REACTIONS (1)
  - DEATH [None]
